FAERS Safety Report 15339279 (Version 1)
Quarter: 2018Q3

REPORT INFORMATION
  Report Type: Spontaneous
  Country: TW (occurrence: TW)
  Receive Date: 20180831
  Receipt Date: 20180831
  Transmission Date: 20181010
  Serious: Yes (Life-Threatening, Hospitalization, Other)
  Sender: FDA-Public Use
  Company Number: TW-FRESENIUS KABI-FK201809189

PATIENT
  Age: 56 Year
  Sex: Male

DRUGS (2)
  1. TRANEXAMIC ACID (MANUFACTURER UNKNOWN) [Suspect]
     Active Substance: TRANEXAMIC ACID
     Indication: PROCEDURAL HAEMORRHAGE
     Route: 042
  2. TRANEXAMIC ACID (MANUFACTURER UNKNOWN) [Suspect]
     Active Substance: TRANEXAMIC ACID
     Indication: POST PROCEDURAL HAEMORRHAGE
     Dosage: APPLIED 2000 MG OF TXA ON THE LUMBAR SPINAL WOUND BEFORE CLOSING THE WOUND
     Route: 061

REACTIONS (3)
  - Epilepsy [Recovering/Resolving]
  - Product use issue [Recovering/Resolving]
  - Product use in unapproved indication [Recovering/Resolving]
